FAERS Safety Report 9107791 (Version 2)
Quarter: 2013Q4

REPORT INFORMATION
  Report Type: Spontaneous
  Country: US (occurrence: US)
  Receive Date: 20130221
  Receipt Date: 20131029
  Transmission Date: 20140711
  Serious: Yes (Disabling)
  Sender: FDA-Public Use
  Company Number: US-BAYER-2013-019183

PATIENT
  Age: 41 Year
  Sex: Female
  Weight: 90.7 kg

DRUGS (4)
  1. MIRENA [Suspect]
     Indication: CONTRACEPTION
     Dosage: 20 MCG/24HR, CONT
     Route: 015
     Dates: start: 2007, end: 20120410
  2. BENICAR HCT [Concomitant]
     Dosage: 20/12.5, 1 TABLET DAILY
  3. MULTIVITAMIN [Concomitant]
     Dosage: DAILY
  4. CALCIUM [Concomitant]
     Dosage: 500 MG, DAILY

REACTIONS (7)
  - Embedded device [None]
  - Abdominal pain [None]
  - Pain [None]
  - Emotional distress [None]
  - Anxiety [None]
  - Deformity [None]
  - Anhedonia [None]
